FAERS Safety Report 11080838 (Version 4)
Quarter: 2015Q2

REPORT INFORMATION
  Report Type: Spontaneous
  Country: US (occurrence: US)
  Receive Date: 20150501
  Receipt Date: 20150527
  Transmission Date: 20150821
  Serious: Yes (Death, Hospitalization)
  Sender: FDA-Public Use
  Company Number: US-UNITED THERAPEUTICS-UNT-2015-004896

PATIENT
  Age: 75 Year
  Sex: Female
  Weight: 62.36 kg

DRUGS (3)
  1. REMODULIN [Suspect]
     Active Substance: TREPROSTINIL
     Indication: PULMONARY ARTERIAL HYPERTENSION
     Dosage: 0.166 ?G/KG, CONTINUING
     Route: 058
     Dates: start: 20120307
  2. REMODULIN [Suspect]
     Active Substance: TREPROSTINIL
     Dosage: 0.166 ?G/KG, CONTINUING
     Route: 058
     Dates: start: 20120326
  3. WARFARIN [Concomitant]
     Active Substance: WARFARIN
     Indication: PRODUCT USED FOR UNKNOWN INDICATION

REACTIONS (5)
  - Myocardial infarction [Fatal]
  - Cardiac failure [Fatal]
  - Multi-organ failure [Fatal]
  - Respiratory failure [Unknown]
  - Hypoxia [Not Recovered/Not Resolved]

NARRATIVE: CASE EVENT DATE: 201504
